FAERS Safety Report 16756733 (Version 1)
Quarter: 2019Q3

REPORT INFORMATION
  Report Type: Spontaneous
  Country: ES (occurrence: ES)
  Receive Date: 20190829
  Receipt Date: 20190829
  Transmission Date: 20191005
  Serious: Yes (Hospitalization)
  Sender: FDA-Public Use
  Company Number: ES-TEVA-2019-ES-1097734

PATIENT
  Age: 83 Year
  Sex: Female

DRUGS (1)
  1. FENTANILO (1543A) [Suspect]
     Active Substance: FENTANYL
     Route: 062
     Dates: start: 20181127, end: 20190510

REACTIONS (1)
  - Dysarthria [Recovered/Resolved]

NARRATIVE: CASE EVENT DATE: 20190505
